FAERS Safety Report 24523947 (Version 8)
Quarter: 2025Q1

REPORT INFORMATION
  Report Type: Spontaneous
  Country: US (occurrence: US)
  Receive Date: 20241018
  Receipt Date: 20250312
  Transmission Date: 20250409
  Serious: Yes (Hospitalization)
  Sender: SANOFI AVENTIS
  Company Number: US-SA-2024SA234031

PATIENT
  Age: 69 Year
  Sex: Female

DRUGS (4)
  1. DUPIXENT [Suspect]
     Active Substance: DUPILUMAB
     Indication: Eczema
     Route: 058
  2. DUPIXENT [Suspect]
     Active Substance: DUPILUMAB
     Indication: Dermatitis atopic
     Dosage: 300 MG, QOW
     Route: 058
  3. FLUOCINONIDE [Suspect]
     Active Substance: FLUOCINONIDE
  4. AMANTADINE [Concomitant]
     Active Substance: AMANTADINE

REACTIONS (14)
  - Gastroenteritis [Unknown]
  - Influenza [Unknown]
  - Alopecia [Unknown]
  - Condition aggravated [Unknown]
  - Fatigue [Unknown]
  - Brain fog [Unknown]
  - COVID-19 [Unknown]
  - Injection site rash [Unknown]
  - Pruritus [Unknown]
  - Therapeutic response decreased [Unknown]
  - Injection site pain [Unknown]
  - Accidental exposure to product [Unknown]
  - Exposure via skin contact [Unknown]
  - Drug ineffective [Unknown]

NARRATIVE: CASE EVENT DATE: 20241001
